FAERS Safety Report 9530439 (Version 3)
Quarter: 2014Q1

REPORT INFORMATION
  Report Type: Report from Study
  Country: US (occurrence: US)
  Receive Date: 20130918
  Receipt Date: 20140122
  Transmission Date: 20141002
  Serious: Yes (Hospitalization, Other)
  Sender: FDA-Public Use
  Company Number: US-ROCHE-1276197

PATIENT
  Age: 65 Year
  Sex: Female

DRUGS (12)
  1. LUCENTIS [Suspect]
     Indication: DIABETIC RETINAL OEDEMA
     Dosage: RIGHT EYE
     Route: 065
     Dates: start: 201306, end: 2013
  2. LUCENTIS [Suspect]
     Indication: DIABETES MELLITUS
     Dosage: RIGHT EYE
     Route: 065
     Dates: start: 2013, end: 2013
  3. LUCENTIS [Suspect]
     Indication: EYE DISORDER
     Route: 065
     Dates: start: 2013
  4. VICTOZA [Concomitant]
     Route: 065
     Dates: start: 201307, end: 201307
  5. METFORMIN [Concomitant]
     Indication: DIABETES MELLITUS
     Route: 065
  6. LISINOPRIL [Concomitant]
     Indication: HYPERTENSION
     Route: 065
  7. LISINOPRIL [Concomitant]
     Indication: BLOOD PRESSURE
  8. ASPIRIN [Concomitant]
     Route: 065
  9. BACTRIM [Concomitant]
     Route: 065
     Dates: start: 201307, end: 201307
  10. SIMVASTATIN [Concomitant]
     Indication: BLOOD CHOLESTEROL
     Route: 065
     Dates: start: 201307, end: 201309
  11. PRAVASTATIN [Concomitant]
     Indication: BLOOD CHOLESTEROL
     Route: 065
     Dates: start: 201309, end: 201309
  12. NIACIN [Concomitant]
     Indication: BLOOD CHOLESTEROL
     Route: 065

REACTIONS (23)
  - Vascular graft [Recovering/Resolving]
  - Cardiac operation [Unknown]
  - Heart rate decreased [Recovered/Resolved]
  - Peripheral arterial occlusive disease [Recovered/Resolved]
  - Coronary artery bypass [Unknown]
  - Pneumonia [Recovering/Resolving]
  - Blood cholesterol increased [Unknown]
  - Photopsia [Recovered/Resolved]
  - Wound infection [Recovered/Resolved]
  - Gait disturbance [Recovered/Resolved]
  - Vomiting [Recovered/Resolved]
  - Muscular weakness [Recovered/Resolved]
  - Muscular weakness [Recovered/Resolved]
  - Pyrexia [Recovered/Resolved]
  - Gait disturbance [Recovering/Resolving]
  - Fatigue [Recovered/Resolved]
  - Asthenia [Recovering/Resolving]
  - Muscle spasms [Unknown]
  - Malaise [Recovered/Resolved]
  - Pain [Recovering/Resolving]
  - Suture rupture [Recovered/Resolved]
  - Cough [Recovering/Resolving]
  - Carotid artery occlusion [Unknown]
